FAERS Safety Report 26135258 (Version 1)
Quarter: 2025Q4

REPORT INFORMATION
  Report Type: Spontaneous
  Country: US (occurrence: US)
  Receive Date: 20251209
  Receipt Date: 20251209
  Transmission Date: 20260118
  Serious: No
  Sender: NOVEN
  Company Number: US-NOVEN PHARMACEUTICALS, INC.-2025-NOV-US000465

PATIENT
  Sex: Female
  Weight: 77.098 kg

DRUGS (2)
  1. ESTRADIOL [Suspect]
     Active Substance: ESTRADIOL
     Indication: Premature menopause
     Dosage: UNK UNK, 2/WEEK
     Route: 062
  2. PROGESTERONE [Suspect]
     Active Substance: PROGESTERONE
     Indication: Premature menopause
     Dosage: UNK, (AT NIGHT)
     Route: 048

REACTIONS (1)
  - Oesophagitis [Not Recovered/Not Resolved]
